FAERS Safety Report 4427616-0 (Version None)
Quarter: 2004Q3

REPORT INFORMATION
  Report Type: 
  Country: None (occurrence: None)
  Receive Date: 20040817
  Receipt Date: 20040621
  Transmission Date: 20050211
  Serious: Yes (Death)
  Sender: FDA-Public Use
  Company Number: IE-MERCK-0406GBR00184

PATIENT
  Age: 79 Year
  Sex: Male

DRUGS (7)
  1. ASPIRIN [Suspect]
     Route: 048
  2. BUMETANIDE [Suspect]
     Route: 048
  3. DEXAMETHASONE [Concomitant]
     Route: 065
  4. OXYCODONE HYDROCHLORIDE [Concomitant]
     Route: 065
  5. OXYTETRACYCLINE [Concomitant]
     Route: 065
  6. PANTOPRAZOLE SODIUM [Concomitant]
     Route: 065
  7. VIOXX [Suspect]
     Route: 048

REACTIONS (1)
  - RENAL IMPAIRMENT [None]
